FAERS Safety Report 8029942-5 (Version None)
Quarter: 2012Q1

REPORT INFORMATION
  Report Type: 
  Country: None (occurrence: None)
  Receive Date: 20120109
  Receipt Date: 20111227
  Transmission Date: 20120608
  Serious: Yes (Hospitalization, Other)
  Sender: FDA-Public Use
  Company Number: DE-JNJFOC-20111208427

PATIENT
  Sex: Female
  Weight: 80 kg

DRUGS (3)
  1. TAPENTADOL HYDROCHLORIDE [Suspect]
     Indication: BACK PAIN
     Route: 048
     Dates: start: 20101205, end: 20110101
  2. DICLOFENAC SODIUM [Concomitant]
     Indication: BACK PAIN
     Route: 065
  3. TAPENTADOL HYDROCHLORIDE [Suspect]
     Route: 048
     Dates: start: 20110101, end: 20110515

REACTIONS (2)
  - RENAL FAILURE ACUTE [None]
  - ACUTE MYOCARDIAL INFARCTION [None]
